FAERS Safety Report 17892835 (Version 5)
Quarter: 2024Q3

REPORT INFORMATION
  Report Type: Spontaneous
  Country: US (occurrence: US)
  Receive Date: 20200613
  Receipt Date: 20240814
  Transmission Date: 20241016
  Serious: Yes (Hospitalization, Other)
  Sender: TEVA
  Company Number: US-TEVA-2020-US-1247896

PATIENT
  Age: 73 Year
  Sex: Male
  Weight: 90.7 kg

DRUGS (80)
  1. HYDROCHLOROTHIAZIDE\VALSARTAN [Suspect]
     Active Substance: HYDROCHLOROTHIAZIDE\VALSARTAN
     Indication: Hypertension
     Dosage: DOSAGE TEXT: 320-25 MG
     Route: 048
  2. HYDROCHLOROTHIAZIDE\LOSARTAN [Suspect]
     Active Substance: HYDROCHLOROTHIAZIDE\LOSARTAN
     Indication: Hypertension
     Dosage: DOSAGE TEXT: 100-25MG
     Route: 065
     Dates: start: 20161108, end: 20170206
  3. HYDROCHLOROTHIAZIDE\LOSARTAN POTASSIUM [Suspect]
     Active Substance: HYDROCHLOROTHIAZIDE\LOSARTAN POTASSIUM
     Indication: Hypertension
     Dosage: DOSAGE TEXT: 100-25MG
     Route: 048
     Dates: start: 20170107, end: 20170606
  4. BENICAR HCT [Concomitant]
     Active Substance: HYDROCHLOROTHIAZIDE\OLMESARTAN MEDOXOMIL
     Indication: Hypertension
     Dosage: 40-25 MG PER TABLET; TAKE 1 TABLET BY MOUTH DAILY?STOP MEDICATION;2021-08-21
     Route: 048
  5. CARDIZEM CD [Concomitant]
     Active Substance: DILTIAZEM HYDROCHLORIDE
     Indication: Hypertension
     Dosage: TAKE 1 CAPSULE BY MOUTH DAILY. STATES TAKES IN THE AM, STARTING FRI 4/16/2021,?UNTIL MON 4/11/202...
     Route: 048
     Dates: start: 20210416, end: 20220411
  6. ZYRTEC [Concomitant]
     Active Substance: CETIRIZINE HYDROCHLORIDE
     Indication: Hypersensitivity
     Dosage: TAKES IN THE AM
     Route: 048
  7. Aspirin-81 [Concomitant]
     Route: 048
  8. ROBAXIN [Concomitant]
     Active Substance: METHOCARBAMOL
     Indication: Arthralgia
     Dosage: TIME INTERVAL: 0.33333333 DAYS: TAKE 1 TABLET BY MOUTH 3 TIMES DAILY AS NEEDED (MUSCLE SPASMS).
     Route: 048
     Dates: start: 20210524
  9. ROSUVASTATIN CALCIUM [Concomitant]
     Active Substance: ROSUVASTATIN CALCIUM
     Route: 048
  10. AMBIEN CR [Concomitant]
     Active Substance: ZOLPIDEM TARTRATE
     Indication: Insomnia
     Route: 048
     Dates: start: 20210519
  11. ALLEGRA [Concomitant]
     Active Substance: FEXOFENADINE HYDROCHLORIDE
     Dosage: TAKE 180 MG BY MOUTH DAILY AS NEEDED. ONLY PRN
     Route: 048
  12. PROBIOTIC COMPLEX [Concomitant]
     Dosage: TAKE BY MOUTH DAILY
     Route: 048
  13. FENOFIBRATE [Concomitant]
     Active Substance: FENOFIBRATE
     Route: 048
  14. IPRATROPIUM BROMIDE [Concomitant]
     Active Substance: IPRATROPIUM BROMIDE\IPRATROPIUM BROMIDE ANHYDROUS
     Dosage: TIME INTERVAL: 0.333 DAYS
     Route: 045
  15. MOBIC [Concomitant]
     Active Substance: MELOXICAM
     Indication: Arthralgia
     Route: 048
     Dates: start: 20210806
  16. FLONASE [Concomitant]
     Active Substance: FLUTICASONE PROPIONATE
     Indication: Rhinitis allergic
     Dosage: TIME INTERVAL: AS NECESSARY: USE 2 SPRAYS IN EACH NOSTRIL AS NEEDED., STARTING MON 5/17/2021, NORMAL
     Route: 045
     Dates: start: 20210517
  17. SINGULAIR [Concomitant]
     Active Substance: MONTELUKAST SODIUM
     Dosage: DOSAGE TEXT: EVENING
     Route: 048
  18. DIOVAN HCT [Suspect]
     Active Substance: HYDROCHLOROTHIAZIDE\VALSARTAN
     Indication: Hypertension
     Route: 065
  19. PRILOSEC [Concomitant]
     Active Substance: OMEPRAZOLE MAGNESIUM
     Dosage: DOSAGE TEXT: EACH MORNING BEFORE BREAKFAST
     Route: 048
  20. LANTUS SOLOSTAR [Concomitant]
     Active Substance: INSULIN GLARGINE
     Dosage: DOSAGE TEXT: 100 UNIT/ML (3ML) PEN
     Route: 058
     Dates: end: 20181112
  21. HYDROCHLOROTHIAZIDE\LOSARTAN [Suspect]
     Active Substance: HYDROCHLOROTHIAZIDE\LOSARTAN
     Dosage: DOSAGE TEXT: 100 MG-25 MG
     Route: 048
  22. HYDROCHLOROTHIAZIDE\LOSARTAN [Suspect]
     Active Substance: HYDROCHLOROTHIAZIDE\LOSARTAN
     Indication: Hypertension
     Dosage: DOSAGE TEXT: 50-12.5MG
     Route: 048
     Dates: start: 20070613, end: 20070713
  23. HYDROCHLOROTHIAZIDE\LOSARTAN [Suspect]
     Active Substance: HYDROCHLOROTHIAZIDE\LOSARTAN
     Indication: Hypertension
     Dosage: DOSAGE TEXT: 100-25MG
     Route: 048
     Dates: start: 20070910, end: 20071109
  24. HYDROCHLOROTHIAZIDE\LOSARTAN [Suspect]
     Active Substance: HYDROCHLOROTHIAZIDE\LOSARTAN
     Indication: Hypertension
     Dosage: DOSAGE TEXT: 100-25MG
     Route: 048
     Dates: start: 20080724, end: 20081022
  25. HYDROCHLOROTHIAZIDE\LOSARTAN [Suspect]
     Active Substance: HYDROCHLOROTHIAZIDE\LOSARTAN
     Indication: Hypertension
     Dosage: DOSAGE TEXT: 100-25MG
     Route: 048
     Dates: start: 20100820, end: 20101118
  26. HYZAAR [Suspect]
     Active Substance: HYDROCHLOROTHIAZIDE\LOSARTAN POTASSIUM
     Indication: Hypertension
     Dosage: DOSAGE TEXT: 100-25MG
     Route: 065
     Dates: start: 20081027, end: 20091101
  27. HYDROCHLOROTHIAZIDE\LOSARTAN [Suspect]
     Active Substance: HYDROCHLOROTHIAZIDE\LOSARTAN
     Indication: Hypertension
     Dosage: DOSAGE TEXT: 100-25MG
     Route: 048
     Dates: start: 20141117, end: 20161027
  28. HYDROCHLOROTHIAZIDE\LOSARTAN [Suspect]
     Active Substance: HYDROCHLOROTHIAZIDE\LOSARTAN
     Indication: Hypertension
     Dosage: DOSAGE TEXT: 100-25MG
     Route: 048
     Dates: start: 20120118, end: 20121001
  29. LOSARTAN POTASSIUM [Suspect]
     Active Substance: LOSARTAN POTASSIUM
     Indication: Hypertension
     Route: 065
     Dates: start: 20130516, end: 20141223
  30. LOSARTAN POTASSIUM [Suspect]
     Active Substance: LOSARTAN POTASSIUM
     Indication: Hypertension
     Route: 065
     Dates: start: 20120718, end: 20130401
  31. LOSARTAN POTASSIUM [Suspect]
     Active Substance: LOSARTAN POTASSIUM
     Indication: Hypertension
     Route: 065
     Dates: start: 20130302, end: 20130531
  32. DECADRON [Concomitant]
     Active Substance: DEXAMETHASONE
     Dosage: TAKE 8MG (2 TABS) BY MOUTH ONCE DAILY ON DAYS 2 AND 3?OF YOUR CHEMOTHERAPY CYCLE.
     Route: 048
  33. DECADRON [Concomitant]
     Active Substance: DEXAMETHASONE
     Dosage: TAKE 1 TABLET BY MOUTH DAILY WITH BREAKFAST. WITH FOOD., STARTING THU?8/19/2021, NORMAL
     Route: 048
  34. CREON [Concomitant]
     Active Substance: PANCRELIPASE AMYLASE\PANCRELIPASE LIPASE\PANCRELIPASE PROTEASE
     Dosage: 24,000-76,000 -120,000 UNIT DELAYED RELEASE CAPSULE,TAKE 2 CAPSULES BY MOUTH 3 TIMES DAILY WITH M...
     Route: 048
  35. CREON [Concomitant]
     Active Substance: PANCRELIPASE AMYLASE\PANCRELIPASE LIPASE\PANCRELIPASE PROTEASE
     Dosage: TAKE 2 CAPSULES BY MOUTH 3 TIMES DAILY WITH MEALS. 1?CAPSULE WITH SNACKS (PATIENT NOT TAKING: REP...
     Route: 048
     Dates: end: 20190103
  36. CIALIS [Concomitant]
     Active Substance: TADALAFIL
     Dosage: TIME INTERVAL: AS NECESSARY: TAKE 20 MG BY MOUTH AS NEEDED. , STARTING SAT 7/3/2021, HISTORICAL MED
     Route: 048
     Dates: start: 20210524
  37. FLOMAX [Concomitant]
     Active Substance: TAMSULOSIN HYDROCHLORIDE
     Route: 048
     Dates: start: 20200602
  38. HUMAN RED BLOOD CELL [Concomitant]
     Active Substance: HUMAN RED BLOOD CELL
     Dates: start: 20210911
  39. methylprednlsolone [Concomitant]
  40. Cipiro [Concomitant]
     Route: 048
  41. IMODIUM AD [Concomitant]
     Active Substance: LOPERAMIDE HYDROCHLORIDE
     Indication: Diarrhoea
     Dosage: TAKE 2 TABLETS BY MOUTH AT ONSET OF DIARRHEA. THEN TAKE 1?TAB EVERY 2 HOURS UNTIL 12 HOURS HAVE P...
     Route: 048
  42. NEULASTA [Concomitant]
     Active Substance: PEGFILGRASTIM
     Dosage: INJECT THE CONTENTS OF 1 SYRINGE UNDER THE SKIN 15 MINUTES
     Route: 058
  43. COMPAZINE [Concomitant]
     Active Substance: PROCHLORPERAZINE MALEATE
     Dosage: TAKE 1 TABLET BY MOUTH EVERY 6 HOURS AS NEEDED FOR?NAUSEA OR VOMITING. MAX DOSE = 40 MG PER 24 HOURS
     Route: 048
  44. TYLENOL [Concomitant]
     Active Substance: ACETAMINOPHEN
     Dosage: TAKE 2 TABLETS BY MOUTH EVERY 6 HOURS AS NEEDED.
     Route: 048
     Dates: start: 20181115, end: 20190131
  45. NEURONTIN [Concomitant]
     Active Substance: GABAPENTIN
     Indication: Neuropathy peripheral
     Dosage: TIME INTERVAL: 0.33333333 DAYS: TAKE 2 CAPSULES BY MOUTH 3 TIMES DAILY FOR 14 DAYS
     Route: 048
     Dates: end: 20190103
  46. ZOFRAN [Concomitant]
     Active Substance: ONDANSETRON HYDROCHLORIDE
     Indication: Nausea
     Dosage: TIME INTERVAL: AS NECESSARY
     Route: 048
  47. GLUCOTROL [Concomitant]
     Active Substance: GLIPIZIDE
     Dosage: TAKE 0.5 TABLETS BY MOUTH DAILY WITH BREAKFAST. ONLY TAKE?IF BLOOD SUGAR GREATER THAN 150 AS INST...
     Route: 048
     Dates: end: 20190103
  48. ROXICODONE [Concomitant]
     Active Substance: OXYCODONE HYDROCHLORIDE
     Dosage: TAKE 1 TO 2 TABLETS BY MOUTH EVERY 6 HOURS AS NEEDED.?(PATIENT NOT TAKING: REPORTED ON 12/19/2018)
     Route: 048
     Dates: end: 20181219
  49. Ammonium lactate  lotion [Concomitant]
  50. LOVENOX [Concomitant]
     Active Substance: ENOXAPARIN SODIUM
     Dosage: INJECT 0.4 ML (40 MG TOTAL) UNDER THE?SKIN DAILY FOR 28 DAYS. ROTATE?INJECTION SITES.
     Route: 058
  51. DOCUSATE SODIUM [Concomitant]
     Active Substance: DOCUSATE SODIUM
     Route: 048
  52. NOVOLOG [Concomitant]
     Active Substance: INSULIN ASPART
     Dosage: 1-5 UNITS WITH MEALS
     Route: 058
  53. NOVOLOG [Concomitant]
     Active Substance: INSULIN ASPART
     Dosage: 1-5 UNITS QHS AND 3 AM
     Route: 058
  54. MARCAINE [Concomitant]
     Active Substance: BUPIVACAINE HYDROCHLORIDE
     Dosage: 0.15 % IN?NACL 0.9% 250 ML REGIONAL ANESTHETIC?8 ML/HR
     Dates: start: 20181112
  55. HYDROMORPHONE [Concomitant]
     Active Substance: HYDROMORPHONE
     Dosage: DOSAGE: 1 MG/ML
  56. DEXTROSE [Concomitant]
     Active Substance: DEXTROSE\DEXTROSE MONOHYDRATE
  57. SODIUM CHLORIDE [Concomitant]
     Active Substance: SODIUM CHLORIDE
     Dosage: 84 ML/HR
  58. lactobacillus?rhamnosus GG [Concomitant]
     Route: 048
  59. PANTOPRAZOLE [Concomitant]
     Active Substance: PANTOPRAZOLE
     Dosage: BEFORE BREAKFAST
     Route: 048
  60. Bupicavaine [Concomitant]
     Dosage: 0.15% , AT 8 ML/HR
  61. ELIQUIS [Concomitant]
     Active Substance: APIXABAN
     Indication: Deep vein thrombosis
     Dosage: TAKE 2 TABLETS BY MOUTH 2 TIMES DAILY. FOR 1 WEEK, THEN 1?TABLET TWICE A DAY
     Route: 048
  62. AUGMENTIN [Concomitant]
     Active Substance: AMOXICILLIN\CLAVULANATE POTASSIUM
     Dosage: 875-125 MG PER TABLET; TAKE 1 TABLET BY MOUTH EVERY 12 HOURS FOR 10 DAYS.?DISPENSE: 20 TABLET; RE...
     Route: 048
  63. VISTARIL [Concomitant]
     Active Substance: HYDROXYZINE PAMOATE
     Indication: Pruritus
     Dosage: TIME INTERVAL: 0.33333333 DAYS: TAKE 1 CAPSULE BY?MOUTH 3 TIMES DAILY AS?NEEDED FOR ITCHING.?270 ...
     Route: 048
  64. XANAX [Concomitant]
     Active Substance: ALPRAZOLAM
     Dosage: TIME INTERVAL: AS NECESSARY
     Route: 048
  65. SODIUM CHLORIDE [Concomitant]
     Active Substance: SODIUM CHLORIDE
     Indication: Hyponatraemia
     Dosage: TIME INTERVAL: 0.33333333 DAYS: TAKE 1 TABLET BY MOUTH 3 TIMES DAILY., STARTING TUE 8/24/2021, UN...
     Route: 048
     Dates: start: 20210824
  66. LASIX [Concomitant]
     Active Substance: FUROSEMIDE
     Indication: Hyponatraemia
     Dosage: TAKE 0.5 TABLETS BY MOUTH TWICE DAILY BEFORE BREAKFAST + DINNER., STARTING TUE?8/24/2021, UNTIL T...
     Route: 048
     Dates: start: 20210824
  67. BENICAR [Concomitant]
     Active Substance: OLMESARTAN MEDOXOMIL
     Indication: Hypertension
     Dosage: TAKE 1 TABLET BY MOUTH DAILY., STARTING TUE 8/24/2021, UNTIL THU 9/23/2021,?NORMAL
     Route: 048
     Dates: start: 20210824
  68. MEGACE [Concomitant]
     Active Substance: MEGESTROL ACETATE
     Route: 048
     Dates: start: 20210806
  69. ZETIA [Concomitant]
     Active Substance: EZETIMIBE
     Route: 048
     Dates: start: 20210716
  70. ATIVAN [Concomitant]
     Active Substance: LORAZEPAM
     Dosage: TAKE 1 TABLET BY MOUTH 1 (ONE) TIME FOR 1 DOSE.?TAKES BEFORE A PROCEDURE (PATIENT NOT TAKING:?REP...
     Route: 048
     Dates: end: 20201215
  71. CARMOL [Concomitant]
     Dosage: APPLY TOPICALLY AS?NEEDED. APPLY AS?NEEDED TO PALMS OF?HANDS AND SOLES OF?FEET.
     Route: 061
  72. DESYREL [Concomitant]
     Active Substance: TRAZODONE HYDROCHLORIDE
  73. SIMETHICONE (DIMETHICONE) [Concomitant]
     Active Substance: DIMETHICONE
  74. MAALOX ANTACID [Concomitant]
     Active Substance: ALUMINUM HYDROXIDE\DIMETHICONE\MAGNESIUM HYDROXIDE
     Dosage: 200-200-20 MG/5 ML ORAL SUSPENSION 30 ML
  75. BENADRYL [Concomitant]
     Active Substance: DIPHENHYDRAMINE HYDROCHLORIDE
  76. OMNIPAQUE [Concomitant]
     Active Substance: IOHEXOL
     Dosage: 350 MG IODINE/ML INJECTION 74 ML (74?ML INTRAVENOUS GIVEN 9/10/21 1510)
  77. SUBLIMAZE [Concomitant]
     Active Substance: FENTANYL CITRATE
     Dosage: 50MCG/ML INJECTION 50 MCG (50?MCG INTRAVENOUS GIVEN 9/10/21 1820)
  78. HEPARIN [Concomitant]
     Active Substance: HEPARIN SODIUM
     Dosage: HEPARIN IN 0.45% NACL 25,000UNITS/250ML?(100UNIT/ML) INFUSION
     Dates: end: 201109
  79. Blood product [Concomitant]
  80. Ketrolac [Concomitant]

REACTIONS (8)
  - Pancreatic carcinoma [Not Recovered/Not Resolved]
  - Bile duct cancer [Not Recovered/Not Resolved]
  - Neoplasm [Not Recovered/Not Resolved]
  - Prostatomegaly [Not Recovered/Not Resolved]
  - Metastases to lymph nodes [Not Recovered/Not Resolved]
  - Cholestasis [Not Recovered/Not Resolved]
  - Metastases to lung [Unknown]
  - Pulmonary fibrosis [Unknown]

NARRATIVE: CASE EVENT DATE: 20210413
